FAERS Safety Report 7290005-8 (Version None)
Quarter: 2011Q1

REPORT INFORMATION
  Report Type: 
  Country: None (occurrence: None)
  Receive Date: 20110214
  Receipt Date: 20110203
  Transmission Date: 20110831
  Serious: Yes (Hospitalization)
  Sender: FDA-Public Use
  Company Number: US-JNJFOC-20100407699

PATIENT
  Sex: Male
  Weight: 62.14 kg

DRUGS (9)
  1. TMC278 [Suspect]
     Indication: HIV INFECTION
     Route: 048
     Dates: start: 20051021
  2. WELLBUTRIN [Concomitant]
     Indication: DEPRESSION
     Route: 065
     Dates: start: 20100206
  3. TYLENOL [Suspect]
  4. IMODIUM [Concomitant]
     Indication: DIARRHOEA
     Route: 048
     Dates: start: 20070501
  5. TRUVADA [Concomitant]
     Indication: HIV INFECTION
     Route: 048
  6. TYLENOL [Suspect]
     Indication: SELF INJURIOUS BEHAVIOUR
  7. PEPCID [Concomitant]
     Indication: DYSPEPSIA
     Route: 048
     Dates: start: 20070501
  8. AMBIEN [Concomitant]
     Indication: SLEEP DISORDER
     Route: 048
     Dates: start: 20081016
  9. ADVIL [Concomitant]
     Indication: HEADACHE
     Route: 048

REACTIONS (1)
  - MULTIPLE DRUG OVERDOSE INTENTIONAL [None]
